FAERS Safety Report 8682188 (Version 2)
Quarter: 2013Q4

REPORT INFORMATION
  Report Type: Spontaneous
  Country: DK (occurrence: DK)
  Receive Date: 20120725
  Receipt Date: 20131204
  Transmission Date: 20140711
  Serious: Yes (Life-Threatening)
  Sender: FDA-Public Use
  Company Number: DK-PFIZER INC-2012175714

PATIENT
  Age: 57 Year
  Sex: Male

DRUGS (4)
  1. VIAGRA [Suspect]
     Indication: ERECTILE DYSFUNCTION
     Dosage: 50 MG, 1 TABLET FOUR HOURS BEFORE INTERCOURSE
     Route: 048
     Dates: start: 20110626, end: 20120707
  2. FURIX [Concomitant]
     Indication: HYPERTENSION
     Dosage: 40 MG, 2X/DAY
  3. SELO-ZOK [Concomitant]
     Indication: HYPERTENSION
     Dosage: 50 MG, 1X/DAY
  4. CORODIL COMP [Concomitant]
     Indication: HYPERTENSION
     Dosage: 0.5 TABLET ONCE A DAY

REACTIONS (1)
  - Retinal vascular thrombosis [Unknown]
